FAERS Safety Report 6312075-3 (Version None)
Quarter: 2009Q3

REPORT INFORMATION
  Report Type: 
  Country: None (occurrence: None)
  Receive Date: 20090817
  Receipt Date: 20090810
  Transmission Date: 20100115
  Serious: Yes (Death, Hospitalization, Other)
  Sender: FDA-Public Use
  Company Number: PHHO2009DK09737

PATIENT
  Sex: Female

DRUGS (4)
  1. LETROZOLE [Suspect]
     Indication: BREAST CANCER METASTATIC
     Dosage: 2.5 MG, QD
     Route: 048
     Dates: start: 20050714
  2. LAPATINIB [Suspect]
     Indication: BREAST CANCER METASTATIC
     Dosage: UNK
     Route: 048
     Dates: start: 20050714
  3. PARACETAMOL [Concomitant]
  4. IBUPROFEN [Concomitant]

REACTIONS (17)
  - AMNESIA [None]
  - ATRIAL FLUTTER [None]
  - BRAIN DEATH [None]
  - CARDIAC PACEMAKER INSERTION [None]
  - CONVULSION [None]
  - DIZZINESS [None]
  - LOSS OF CONSCIOUSNESS [None]
  - MALAISE [None]
  - MIXED INCONTINENCE [None]
  - NAUSEA [None]
  - NERVOUS SYSTEM DISORDER [None]
  - PNEUMONIA [None]
  - PRESYNCOPE [None]
  - SINOATRIAL BLOCK [None]
  - SOMNOLENCE [None]
  - STATUS EPILEPTICUS [None]
  - UNRESPONSIVE TO STIMULI [None]
